FAERS Safety Report 20058233 (Version 22)
Quarter: 2025Q1

REPORT INFORMATION
  Report Type: Report from Study
  Country: CA (occurrence: CA)
  Receive Date: 20211111
  Receipt Date: 20250227
  Transmission Date: 20250408
  Serious: Yes (Other)
  Sender: NOVARTIS
  Company Number: CA-NOVARTISPH-PHHY2012CA144256

PATIENT
  Age: 56 Year
  Sex: Female

DRUGS (21)
  1. SANDOSTATIN [Suspect]
     Active Substance: OCTREOTIDE ACETATE
     Indication: Neuroendocrine tumour
     Dosage: UNK, TID (CONT 02 WEEKS POST 01ST LAR)
     Route: 058
     Dates: start: 201201, end: 201204
  2. SANDOSTATIN [Suspect]
     Active Substance: OCTREOTIDE ACETATE
     Dosage: 20 MG, QMO
     Route: 030
     Dates: start: 20120327
  3. SANDOSTATIN [Suspect]
     Active Substance: OCTREOTIDE ACETATE
     Dosage: 20 MG, QMO
     Route: 030
     Dates: start: 20240125
  4. SANDOSTATIN LAR DEPOT [Suspect]
     Active Substance: OCTREOTIDE ACETATE
     Indication: Neuroendocrine tumour
     Dosage: 20 MG, QMO (ONCE A MONTH)
     Route: 030
     Dates: start: 20120327
  5. SANDOSTATIN LAR DEPOT [Suspect]
     Active Substance: OCTREOTIDE ACETATE
     Dosage: 30 MG, QMO (ONCE A MONTH)
     Route: 030
  6. SANDOSTATIN LAR DEPOT [Suspect]
     Active Substance: OCTREOTIDE ACETATE
     Dosage: 20 MG, QMO (EVERY 4 WEEKS)
     Route: 030
  7. SANDOSTATIN LAR DEPOT [Suspect]
     Active Substance: OCTREOTIDE ACETATE
     Dosage: 20 MG, QMO (ONCE A MONTH)
     Route: 030
  8. SANDOSTATIN LAR DEPOT [Suspect]
     Active Substance: OCTREOTIDE ACETATE
     Route: 065
  9. SANDOSTATIN LAR DEPOT [Suspect]
     Active Substance: OCTREOTIDE ACETATE
     Dosage: 20 MG, QMO (ONCE A MONTH)
     Route: 065
  10. SANDOSTATIN [Concomitant]
     Active Substance: OCTREOTIDE ACETATE
     Indication: Neuroendocrine tumour
     Dosage: UNK, TID
     Route: 058
     Dates: start: 2012, end: 2012
  11. AFINITOR [Concomitant]
     Active Substance: EVEROLIMUS
     Indication: Neuroendocrine tumour
     Route: 048
     Dates: start: 2012
  12. AFINITOR [Concomitant]
     Active Substance: EVEROLIMUS
     Dosage: 10 MG, QD
     Route: 048
     Dates: start: 20121005
  13. INSULIN NOS [Concomitant]
     Active Substance: INSULIN NOS
     Indication: Product used for unknown indication
     Route: 065
     Dates: end: 20200121
  14. DEXILANT [Concomitant]
     Active Substance: DEXLANSOPRAZOLE
     Indication: Product used for unknown indication
     Route: 048
  15. VITAMIN D [Concomitant]
     Active Substance: VITAMIN D NOS
     Indication: Product used for unknown indication
     Route: 048
  16. ASPIRIN [Concomitant]
     Active Substance: ASPIRIN
     Indication: Product used for unknown indication
     Route: 048
  17. CRESTOR [Concomitant]
     Active Substance: ROSUVASTATIN CALCIUM
     Indication: Product used for unknown indication
     Route: 048
  18. MINERALS\VITAMINS [Concomitant]
     Active Substance: MINERALS\VITAMINS
     Indication: Product used for unknown indication
     Route: 048
  19. FERROUS SULFATE [Concomitant]
     Active Substance: FERROUS SULFATE
     Indication: Product used for unknown indication
     Route: 048
  20. BUPROPION [Concomitant]
     Active Substance: BUPROPION
     Indication: Product used for unknown indication
     Route: 048
  21. ABILIFY [Concomitant]
     Active Substance: ARIPIPRAZOLE
     Indication: Product used for unknown indication
     Dosage: 1 MG, QD
     Route: 065

REACTIONS (80)
  - Hypertension [Unknown]
  - Pneumonia [Not Recovered/Not Resolved]
  - Cellulitis [Unknown]
  - Metastasis [Unknown]
  - Metastases to liver [Recovering/Resolving]
  - Rosacea [Unknown]
  - Paronychia [Recovered/Resolved]
  - Localised infection [Unknown]
  - Peripheral swelling [Unknown]
  - Pain in extremity [Recovering/Resolving]
  - Urinary tract infection [Not Recovered/Not Resolved]
  - Acne [Recovering/Resolving]
  - Dry skin [Unknown]
  - Secretion discharge [Recovering/Resolving]
  - Scab [Unknown]
  - Skin irritation [Not Recovered/Not Resolved]
  - Periorbital oedema [Not Recovered/Not Resolved]
  - Rectal fissure [Unknown]
  - Erythema [Not Recovered/Not Resolved]
  - Oedema peripheral [Recovering/Resolving]
  - Musculoskeletal pain [Unknown]
  - Anxiety [Unknown]
  - Skin sensitisation [Unknown]
  - Oedema [Unknown]
  - Illness [Unknown]
  - Nasal congestion [Recovering/Resolving]
  - Cough [Not Recovered/Not Resolved]
  - Hypersomnia [Unknown]
  - Cyst [Unknown]
  - Swelling [Unknown]
  - Pain [Unknown]
  - Sensitisation [Unknown]
  - Mobility decreased [Unknown]
  - Blood pressure systolic increased [Unknown]
  - Ovarian cyst [Unknown]
  - Induration [Unknown]
  - Sinusitis [Unknown]
  - Anaemia [Unknown]
  - Disturbance in attention [Unknown]
  - Protein urine [Unknown]
  - Mass [Unknown]
  - Tremor [Unknown]
  - Crying [Unknown]
  - Blood creatine increased [Unknown]
  - Arthralgia [Unknown]
  - Miliaria [Unknown]
  - Eye pruritus [Not Recovered/Not Resolved]
  - Hypersensitivity [Unknown]
  - Tendonitis [Unknown]
  - Proctalgia [Unknown]
  - Haemorrhoids [Unknown]
  - Bronchitis [Unknown]
  - Haemorrhoidal haemorrhage [Unknown]
  - Vitamin B12 deficiency [Unknown]
  - Weight decreased [Unknown]
  - Fall [Unknown]
  - Balance disorder [Unknown]
  - Bone pain [Not Recovered/Not Resolved]
  - Sputum discoloured [Unknown]
  - Nasopharyngitis [Unknown]
  - Needle issue [Unknown]
  - COVID-19 [Unknown]
  - Hyperaesthesia [Not Recovered/Not Resolved]
  - Hypoglycaemia [Unknown]
  - Dizziness [Not Recovered/Not Resolved]
  - Pruritus [Unknown]
  - Dyspepsia [Unknown]
  - Abdominal pain [Recovered/Resolved]
  - Rash [Not Recovered/Not Resolved]
  - Injection site hypersensitivity [Unknown]
  - Nausea [Unknown]
  - Fatigue [Unknown]
  - Injection site mass [Unknown]
  - Injection site pain [Unknown]
  - Headache [Unknown]
  - Injection site haemorrhage [Unknown]
  - Injection site haematoma [Recovered/Resolved]
  - Haematoma [Unknown]
  - Injection site pain [Recovered/Resolved]
  - Product use issue [Unknown]

NARRATIVE: CASE EVENT DATE: 20120330
